FAERS Safety Report 15156431 (Version 6)
Quarter: 2019Q1

REPORT INFORMATION
  Report Type: Spontaneous
  Country: US (occurrence: US)
  Receive Date: 20180717
  Receipt Date: 20190128
  Transmission Date: 20190417
  Serious: Yes (Hospitalization)
  Sender: FDA-Public Use
  Company Number: US-ACTELION-A-US2018-175597

PATIENT
  Age: 55 Year
  Sex: Female

DRUGS (4)
  1. UPTRAVI [Suspect]
     Active Substance: SELEXIPAG
     Indication: PULMONARY ARTERIAL HYPERTENSION
     Dosage: 1600 MCG, BID
     Route: 048
     Dates: start: 20180710, end: 20190110
  2. REMODULIN [Concomitant]
     Active Substance: TREPROSTINIL
  3. OXYGEN. [Concomitant]
     Active Substance: OXYGEN
  4. OPSUMIT [Suspect]
     Active Substance: MACITENTAN
     Indication: PULMONARY ARTERIAL HYPERTENSION
     Dosage: 10 MG, QD
     Route: 048
     Dates: start: 20161201, end: 20190110

REACTIONS (12)
  - Weight increased [Not Recovered/Not Resolved]
  - Oxygen saturation decreased [Unknown]
  - Skin odour abnormal [Unknown]
  - Fall [Unknown]
  - Fluid retention [Not Recovered/Not Resolved]
  - Weight fluctuation [Unknown]
  - Hospice care [Unknown]
  - Face injury [Recovered/Resolved]
  - Pulmonary arterial hypertension [Unknown]
  - Sjogren^s syndrome [Unknown]
  - Syncope [Recovered/Resolved]
  - Disease complication [Unknown]

NARRATIVE: CASE EVENT DATE: 20180728
